FAERS Safety Report 7002749-3 (Version None)
Quarter: 2010Q3

REPORT INFORMATION
  Report Type: 
  Country: None (occurrence: None)
  Receive Date: 20100920
  Receipt Date: 20100910
  Transmission Date: 20110219
  Serious: Yes (Other)
  Sender: FDA-Public Use
  Company Number: US-BAXTER-2010BH023549

PATIENT
  Age: 24 Month
  Sex: Female

DRUGS (5)
  1. CYCLOPHOSPHAMIDE [Suspect]
     Indication: GANGLIONEUROMA
     Route: 065
  2. MESNA [Suspect]
     Indication: GANGLIONEUROMA
     Route: 065
  3. IFOSFAMIDE [Suspect]
     Indication: GANGLIONEUROMA
     Route: 065
  4. CARBOPLATIN [Suspect]
     Indication: GANGLIONEUROMA
     Route: 065
  5. ETOPOSIDE [Suspect]
     Indication: GANGLIONEUROMA
     Route: 065

REACTIONS (3)
  - CONVULSION [None]
  - HYPONATRAEMIA [None]
  - NEPHROPATHY TOXIC [None]
